FAERS Safety Report 5674326-8 (Version None)
Quarter: 2008Q2

REPORT INFORMATION
  Report Type: 
  Country: None (occurrence: None)
  Receive Date: 20080229
  Receipt Date: 20071107
  Transmission Date: 20081010
  Serious: Yes (Death, Other)
  Sender: FDA-Public Use
  Company Number: 248700

PATIENT
  Age: 8 Year
  Sex: Male

DRUGS (5)
  1. NUTROPIN AQ [Suspect]
     Indication: GROWTH RETARDATION
     Dates: start: 20051101
  2. THALIDOMIDE (THALIDOMIDE) [Concomitant]
  3. LEFLUNOMIDE [Concomitant]
  4. FOSAMAX [Concomitant]
  5. REMICDE (INFLIXIMAB) [Concomitant]

REACTIONS (1)
  - BENIGN INTRACRANIAL HYPERTENSION [None]
